FAERS Safety Report 8160988-2 (Version None)
Quarter: 2012Q1

REPORT INFORMATION
  Report Type: 
  Country: None (occurrence: None)
  Receive Date: 20120223
  Receipt Date: 20120214
  Transmission Date: 20120608
  Serious: Yes (Other)
  Sender: FDA-Public Use
  Company Number: US-ASTRAZENECA-2012SE09993

PATIENT
  Age: 87 Year
  Sex: Female
  Weight: 47.6 kg

DRUGS (3)
  1. LEVOBUNOLOL HCL [Concomitant]
     Indication: GLAUCOMA
  2. CASATRATIN [Concomitant]
  3. FASLODEX [Suspect]
     Indication: BREAST CANCER METASTATIC
     Route: 030
     Dates: start: 20120210

REACTIONS (2)
  - VISUAL IMPAIRMENT [None]
  - HALLUCINATION, VISUAL [None]
